FAERS Safety Report 8966239 (Version 2)
Quarter: 2012Q4

REPORT INFORMATION
  Report Type: 
  Country: US (occurrence: US)
  Receive Date: 20121214
  Receipt Date: 20121231
  Transmission Date: 20130627
  Serious: Yes (Other)
  Sender: FDA-Public Use
  Company Number: US-GENZYME-CERZ-1002602

PATIENT
  Age: 35 Year
  Sex: Female
  Weight: 76.64 kg

DRUGS (5)
  1. CEREZYME [Suspect]
     Indication: GAUCHER^S DISEASE
     Dosage: 4400 U, q4w
     Route: 042
     Dates: start: 20080131
  2. CEREZYME [Suspect]
     Dosage: 30 U/kg, q3w (during shortage)
     Route: 042
  3. ANALGESIC COMBINATION [Concomitant]
     Indication: PREMEDICATION
     Dosage: UNK
     Route: 065
  4. TOPAMAX [Concomitant]
     Indication: PREMEDICATION
     Route: 065
  5. PROPANOL [Concomitant]
     Indication: PREMEDICATION

REACTIONS (3)
  - Migraine [Recovered/Resolved]
  - Nausea [Unknown]
  - Vomiting [Unknown]
